FAERS Safety Report 8958637 (Version 1)
Quarter: 2012Q4

REPORT INFORMATION
  Report Type: Spontaneous
  Country: US (occurrence: None)
  Receive Date: 20121206
  Receipt Date: 20121206
  Transmission Date: 20130627
  Serious: Yes (Death)
  Sender: FDA-Public Use
  Company Number: None

PATIENT
  Age: 56 Year
  Sex: Male

DRUGS (2)
  1. JAKAFI [Suspect]
     Indication: SPINAL CORD NEOPLASM
     Dosage: 15 mg  QPM  PO
     Route: 048
     Dates: start: 20120516, end: 20121129
  2. JAKAFI [Suspect]
     Dosage: 20 mg  QAM  PO
     Route: 048

REACTIONS (2)
  - Respiratory failure [None]
  - Sepsis [None]
